FAERS Safety Report 12918830 (Version 4)
Quarter: 2017Q1

REPORT INFORMATION
  Report Type: Spontaneous
  Country: IT (occurrence: IT)
  Receive Date: 20161108
  Receipt Date: 20170221
  Transmission Date: 20170428
  Serious: Yes (Hospitalization)
  Sender: FDA-Public Use
  Company Number: IT-ROCHE-1850295

PATIENT
  Age: 64 Year
  Sex: Male
  Weight: 94 kg

DRUGS (18)
  1. PANTOPRAZOLE [Suspect]
     Active Substance: PANTOPRAZOLE SODIUM
     Indication: PROPHYLAXIS AGAINST GASTROINTESTINAL ULCER
     Dosage: 14 TABLETS IN AL/OPA/AL/VC BLISTER PACK
     Route: 048
     Dates: start: 20160821, end: 20161018
  2. SILODOSIN [Concomitant]
     Active Substance: SILODOSIN
     Indication: BENIGN PROSTATIC HYPERPLASIA
     Route: 048
     Dates: start: 20160921
  3. ACYCLOVIR. [Suspect]
     Active Substance: ACYCLOVIR
     Indication: PROPHYLAXIS
     Dosage: 25 X 400 MG TABLETS.
     Route: 048
     Dates: start: 20160904, end: 20161016
  4. CARDIOASPIRIN [Suspect]
     Active Substance: ASPIRIN
     Indication: MYOCARDIAL ISCHAEMIA
     Route: 048
     Dates: start: 20160921, end: 20161018
  5. PARACETAMOL [Concomitant]
     Active Substance: ACETAMINOPHEN
     Dosage: MAX 2 TIMES PER DAY FOR THE FIRST 3 DAYS
     Route: 065
  6. DEURSIL [Suspect]
     Active Substance: URSODIOL
     Indication: LIVER TRANSPLANT
     Dosage: 20 CAPSULES
     Route: 048
     Dates: start: 20160826, end: 20161018
  7. TACNI [Suspect]
     Active Substance: TACROLIMUS
     Indication: LIVER TRANSPLANT
     Dosage: 60 CAPSULES, INTERRUPTED ON 27/OCT/2016
     Route: 048
     Dates: start: 20160821
  8. ATORVASTATIN [Concomitant]
     Active Substance: ATORVASTATIN
     Indication: HYPERCHOLESTEROLAEMIA
     Route: 065
     Dates: start: 20160921
  9. TRAMADOL. [Concomitant]
     Active Substance: TRAMADOL
     Indication: PAIN
     Route: 048
     Dates: start: 20160821, end: 20161016
  10. VALCYTE [Suspect]
     Active Substance: VALGANCICLOVIR HYDROCHLORIDE
     Indication: CYTOMEGALOVIRUS INFECTION
     Dosage: 60 TABLETS
     Route: 048
     Dates: start: 20161006, end: 20161018
  11. METHYLPREDNISOLONE. [Concomitant]
     Active Substance: METHYLPREDNISOLONE
     Indication: LIVER TRANSPLANT
     Route: 065
     Dates: start: 20160821, end: 20160928
  12. OMEPRAZOLE. [Concomitant]
     Active Substance: OMEPRAZOLE
     Dosage: 1 TABLET, EVENING
     Route: 065
  13. CUBICIN [Suspect]
     Active Substance: DAPTOMYCIN
     Indication: STAPHYLOCOCCAL INFECTION
     Route: 042
     Dates: start: 20160821, end: 20161010
  14. AMIODARONE [Suspect]
     Active Substance: AMIODARONE
     Indication: ATRIAL FIBRILLATION
     Dosage: 20 TABLETS, INTERRUPTED ON 27/OCT/2016
     Route: 048
     Dates: start: 20160901
  15. BASSADO [Suspect]
     Active Substance: DOXYCYCLINE HYCLATE
     Indication: STAPHYLOCOCCAL INFECTION
     Dosage: 10 TABLETS
     Route: 048
     Dates: start: 20161001, end: 20161010
  16. NADROPARIN CALCIUM [Concomitant]
     Active Substance: NADROPARIN CALCIUM
     Indication: THROMBOSIS PROPHYLAXIS
     Route: 058
     Dates: start: 20160821, end: 20160921
  17. DALACIN C [Suspect]
     Active Substance: CLINDAMYCIN PHOSPHATE
     Indication: STAPHYLOCOCCAL INFECTION
     Route: 065
     Dates: start: 20160919, end: 20160925
  18. FUROSEMIDE. [Concomitant]
     Active Substance: FUROSEMIDE
     Dosage: 1 TABLET  AT 8 AM, MONDAY/WEDNESDAY/FRIDA
     Route: 065

REACTIONS (1)
  - Stevens-Johnson syndrome [Recovering/Resolving]

NARRATIVE: CASE EVENT DATE: 20161016
